FAERS Safety Report 15335086 (Version 2)
Quarter: 2018Q3

REPORT INFORMATION
  Report Type: Spontaneous
  Country: US (occurrence: US)
  Receive Date: 20180830
  Receipt Date: 20180904
  Transmission Date: 20181010
  Serious: Yes (Other)
  Sender: FDA-Public Use
  Company Number: US-PFIZER INC-2018345146

PATIENT
  Age: 52 Year
  Sex: Female
  Weight: 109 kg

DRUGS (8)
  1. LIDOCAINE HCL [Suspect]
     Active Substance: LIDOCAINE HYDROCHLORIDE
     Indication: EPIDURAL ANAESTHESIA
     Dosage: SUBARACHNOID ADMINISTRATION
     Route: 008
  2. LIDOCAINE HCL [Suspect]
     Active Substance: LIDOCAINE HYDROCHLORIDE
     Dosage: 3 ML, UNK
     Route: 008
  3. ASPIRIN. [Concomitant]
     Active Substance: ASPIRIN
     Dosage: 80 MG, UNK
  4. LIDOCAINE HCL [Suspect]
     Active Substance: LIDOCAINE HYDROCHLORIDE
     Dosage: 10 ML, UNK (TWO 10 ML DOSES OVER A 10 MIN PERIOD)
     Route: 008
  5. HYDROCHLOROTHIAZIDE WITH TRIAMTERENE [Concomitant]
     Active Substance: HYDROCHLOROTHIAZIDE\TRIAMTERENE
     Dosage: UNK
  6. ALLOPURINOL. [Concomitant]
     Active Substance: ALLOPURINOL
     Indication: GOUT
     Dosage: UNK
  7. LIDOCAINE HCL [Suspect]
     Active Substance: LIDOCAINE HYDROCHLORIDE
     Dosage: 4 ML, UNK
     Route: 058
  8. SODIUM BICARBONATE. [Suspect]
     Active Substance: SODIUM BICARBONATE
     Indication: EPIDURAL ANAESTHESIA
     Dosage: 1 ML, UNK (TO EACH 10 ML 2% PRESERVATIVE FREE LIDOCAINE)

REACTIONS (3)
  - Neurotoxicity [Recovering/Resolving]
  - Incorrect route of drug administration [Unknown]
  - Cauda equina syndrome [Recovering/Resolving]
